FAERS Safety Report 12721114 (Version 1)
Quarter: 2016Q3

REPORT INFORMATION
  Report Type: Spontaneous
  Country: US (occurrence: US)
  Receive Date: 20160907
  Receipt Date: 20160907
  Transmission Date: 20161109
  Serious: No
  Sender: FDA-Public Use
  Company Number: US-ACTELION-A-US2016-141514

PATIENT
  Age: 48 Year
  Sex: Male

DRUGS (3)
  1. UPTRAVI [Suspect]
     Active Substance: SELEXIPAG
     Indication: PULMONARY ARTERIAL HYPERTENSION
     Dosage: 1400 MCG, BID
     Route: 048
     Dates: start: 20160821
  2. UPTRAVI [Suspect]
     Active Substance: SELEXIPAG
     Dosage: UNK MCG, UNK
     Route: 048
  3. OPSUMIT [Suspect]
     Active Substance: MACITENTAN
     Indication: PULMONARY ARTERIAL HYPERTENSION
     Dosage: 10 MG, QD
     Route: 048
     Dates: start: 20160419

REACTIONS (3)
  - Myalgia [Recovering/Resolving]
  - Headache [Recovering/Resolving]
  - Walking disability [Recovering/Resolving]

NARRATIVE: CASE EVENT DATE: 20160821
